FAERS Safety Report 7134358-X (Version None)
Quarter: 2010Q4

REPORT INFORMATION
  Report Type: 
  Country: None (occurrence: None)
  Receive Date: 20101130
  Receipt Date: 20101130
  Transmission Date: 20110411
  Serious: Yes (Other)
  Sender: FDA-Public Use
  Company Number: None

PATIENT
  Age: 44 Year
  Sex: Female
  Weight: 52.1637 kg

DRUGS (1)
  1. SULFAMETHOXAZOLE AND TRIMETHOPRIM [Suspect]
     Indication: URINARY TRACT INFECTION
     Dosage: 20 TABLET TWICE DAILY PO
     Route: 048
     Dates: start: 20100920, end: 20100929

REACTIONS (3)
  - ABDOMINAL PAIN LOWER [None]
  - DRUG HYPERSENSITIVITY [None]
  - PYREXIA [None]
